FAERS Safety Report 6031969-X (Version None)
Quarter: 2009Q1

REPORT INFORMATION
  Report Type: 
  Country: None (occurrence: None)
  Receive Date: 20090107
  Receipt Date: 20081223
  Transmission Date: 20090719
  Serious: Yes (Hospitalization, Other)
  Sender: FDA-Public Use
  Company Number: 20080289 /

PATIENT
  Age: 36 Year
  Sex: Female

DRUGS (1)
  1. VENOFER [Suspect]
     Indication: POSTPARTUM HAEMORRHAGE
     Dosage: 225MG ONCE IN 300 ML, FREQUENCY + ROUTE: NSS INTRAVENOUS
     Route: 042
     Dates: start: 20080909, end: 20080909

REACTIONS (1)
  - PHLEBITIS [None]
